FAERS Safety Report 12948704 (Version 1)
Quarter: 2016Q4

REPORT INFORMATION
  Report Type: Spontaneous
  Country: US (occurrence: US)
  Receive Date: 20161117
  Receipt Date: 20161117
  Transmission Date: 20170207
  Serious: Yes (Other)
  Sender: FDA-Public Use
  Company Number: US-AMGEN-USASP2016159519

PATIENT
  Age: 75 Year
  Sex: Female

DRUGS (10)
  1. ORENCIA [Concomitant]
     Active Substance: ABATACEPT
     Indication: ARTHRITIS
     Dosage: UNK
     Route: 065
  2. XELJANZ [Concomitant]
     Active Substance: TOFACITINIB CITRATE
     Dosage: 11 MG, QD
     Route: 048
  3. PREDNISONE. [Concomitant]
     Active Substance: PREDNISONE
     Indication: PAIN
     Dosage: 5 MG, AS NECESSARY
     Dates: start: 20160714
  4. LIBRAX [Concomitant]
     Active Substance: CHLORDIAZEPOXIDE HYDROCHLORIDE\CLIDINIUM BROMIDE
     Indication: IRRITABLE BOWEL SYNDROME
     Dosage: UNK
  5. VITAMIN D3 [Concomitant]
     Active Substance: CHOLECALCIFEROL
     Dosage: 2000 MG, BID
  6. ENBREL [Suspect]
     Active Substance: ETANERCEPT
     Indication: ARTHRITIS
     Dosage: UNK
     Route: 065
  7. XELJANZ [Concomitant]
     Active Substance: TOFACITINIB CITRATE
     Indication: ARTHRITIS
     Dosage: 5 MG, QD
     Route: 048
  8. LABETALOL [Concomitant]
     Active Substance: LABETALOL\LABETALOL HYDROCHLORIDE
     Indication: BLOOD PRESSURE MEASUREMENT
     Dosage: 100 MG, BID
  9. FIBER [Concomitant]
     Active Substance: PSYLLIUM HUSK
     Dosage: 4 G, BID
  10. PROBIOTIC [Concomitant]
     Active Substance: PROBIOTICS NOS
     Indication: PROBIOTIC THERAPY
     Dosage: 500 MILLION UNIT, BID

REACTIONS (12)
  - Joint effusion [Unknown]
  - Increased appetite [Not Recovered/Not Resolved]
  - Weight increased [Not Recovered/Not Resolved]
  - Joint swelling [Unknown]
  - Arthralgia [Unknown]
  - Gait disturbance [Unknown]
  - Flatulence [Not Recovered/Not Resolved]
  - Urinary tract infection [Unknown]
  - Mouth haemorrhage [Recovered/Resolved]
  - Off label use [Unknown]
  - Hypertension [Not Recovered/Not Resolved]
  - Epistaxis [Unknown]
